FAERS Safety Report 14376617 (Version 1)
Quarter: 2018Q1

REPORT INFORMATION
  Report Type: Spontaneous
  Country: US (occurrence: US)
  Receive Date: 20180110
  Receipt Date: 20180110
  Transmission Date: 20180509
  Serious: Yes (Hospitalization)
  Sender: FDA-Public Use
  Company Number: None

PATIENT
  Age: 48 Year
  Sex: Male

DRUGS (7)
  1. PLAVIX [Concomitant]
     Active Substance: CLOPIDOGREL BISULFATE
  2. TACROLIMUS 0.5MG [Suspect]
     Active Substance: TACROLIMUS
     Indication: RENAL TRANSPLANT
     Dosage: 2 CAPS Q A.M. AND Q P.M. ORAL
     Route: 048
     Dates: start: 20170308
  3. ASPIRIN. [Concomitant]
     Active Substance: ASPIRIN
  4. ALLOPURINOL. [Concomitant]
     Active Substance: ALLOPURINOL
  5. MYCOPHENOLATE 250MG [Suspect]
     Active Substance: MYCOPHENOLIC ACID
     Indication: RENAL TRANSPLANT
     Dosage: 2 CAPS (500MG TOTAL) Q 12 HOURS ORAL
     Route: 048
     Dates: start: 20170308
  6. GLIPIZIDE. [Concomitant]
     Active Substance: GLIPIZIDE
  7. CARVEDILOL. [Concomitant]
     Active Substance: CARVEDILOL

REACTIONS (1)
  - Abdominal pain upper [None]

NARRATIVE: CASE EVENT DATE: 20180102
